FAERS Safety Report 12689395 (Version 1)
Quarter: 2016Q3

REPORT INFORMATION
  Report Type: Spontaneous
  Country: None (occurrence: None)
  Receive Date: 20160825
  Receipt Date: 20160825
  Transmission Date: 20161109
  Serious: Yes (Other)
  Sender: FDA-Public Use
  Company Number: None

PATIENT
  Age: 63 Year
  Sex: Female

DRUGS (6)
  1. VALACYCLOVIR [Concomitant]
     Active Substance: VALACYCLOVIR HYDROCHLORIDE
  2. ACETYLCYSTEINE, 200MG KOSHLAND PHARM [Suspect]
     Active Substance: ACETYLCYSTEINE
     Indication: SINUSITIS
     Route: 045
     Dates: start: 20160616, end: 20160718
  3. LEXAPRO [Concomitant]
     Active Substance: ESCITALOPRAM OXALATE
  4. ACETYLCYSTEINE, 200MG KOSHLAND PHARM [Suspect]
     Active Substance: ACETYLCYSTEINE
     Indication: PULMONARY CONGESTION
     Route: 045
     Dates: start: 20160616, end: 20160718
  5. VAGIFEM [Concomitant]
     Active Substance: ESTRADIOL
  6. MELOXICAM. [Concomitant]
     Active Substance: MELOXICAM

REACTIONS (4)
  - Epistaxis [None]
  - Nasal discomfort [None]
  - Hyposmia [None]
  - Pain [None]

NARRATIVE: CASE EVENT DATE: 20160718
